FAERS Safety Report 10692345 (Version 2)
Quarter: 2015Q1

REPORT INFORMATION
  Report Type: Spontaneous
  Country: TR (occurrence: TR)
  Receive Date: 20150106
  Receipt Date: 20150106
  Transmission Date: 20150720
  Serious: Yes (Death, Hospitalization)
  Sender: FDA-Public Use
  Company Number: TR-ACCORD-027943

PATIENT
  Age: 18 Year
  Sex: Female

DRUGS (1)
  1. AMITRIPTYLINE [Suspect]
     Active Substance: AMITRIPTYLINE
     Indication: PRODUCT USED FOR UNKNOWN INDICATION

REACTIONS (10)
  - Toxicity to various agents [Unknown]
  - Hypotension [Recovered/Resolved]
  - Mydriasis [Recovering/Resolving]
  - Agitation [Unknown]
  - Sinus tachycardia [Unknown]
  - Dyskinesia [Unknown]
  - Cardiac arrest [Fatal]
  - Respiratory depression [Unknown]
  - Metabolic acidosis [Unknown]
  - Troponin I increased [Unknown]
